FAERS Safety Report 16416660 (Version 1)
Quarter: 2019Q2

REPORT INFORMATION
  Report Type: Spontaneous
  Country: RU (occurrence: RU)
  Receive Date: 20190611
  Receipt Date: 20190611
  Transmission Date: 20190711
  Serious: Yes (Other)
  Sender: FDA-Public Use
  Company Number: RU-JNJFOC-20190609624

PATIENT
  Age: 17 Year
  Sex: Male

DRUGS (7)
  1. REMICADE [Suspect]
     Active Substance: INFLIXIMAB
     Indication: CROHN^S DISEASE
     Route: 042
     Dates: start: 20190530
  2. CALCIUM CARBONATE. [Concomitant]
     Active Substance: CALCIUM CARBONATE
     Route: 065
  3. NICOTINAMIDE [Concomitant]
     Active Substance: NIACINAMIDE
     Route: 065
  4. INFLIXIMAB [Suspect]
     Active Substance: INFLIXIMAB
     Indication: CROHN^S DISEASE
     Route: 065
     Dates: start: 2017
  5. AZATHIOPRINE. [Concomitant]
     Active Substance: AZATHIOPRINE
     Route: 065
  6. REMICADE [Suspect]
     Active Substance: INFLIXIMAB
     Indication: CROHN^S DISEASE
     Route: 042
     Dates: start: 2015
  7. INFLIXIMAB [Suspect]
     Active Substance: INFLIXIMAB
     Indication: CROHN^S DISEASE
     Route: 065

REACTIONS (8)
  - Alanine aminotransferase increased [Unknown]
  - Fistula [Unknown]
  - Aspartate aminotransferase increased [Recovering/Resolving]
  - Cardiomyopathy [Unknown]
  - Aphthous ulcer [Recovered/Resolved]
  - Blood creatine phosphokinase MB increased [Recovering/Resolving]
  - Crohn^s disease [Unknown]
  - Disability [Recovered/Resolved]

NARRATIVE: CASE EVENT DATE: 2015
